FAERS Safety Report 12565415 (Version 7)
Quarter: 2017Q3

REPORT INFORMATION
  Report Type: Report from Study
  Country: TW (occurrence: TW)
  Receive Date: 20160718
  Receipt Date: 20170926
  Transmission Date: 20171127
  Serious: Yes (Hospitalization)
  Sender: FDA-Public Use
  Company Number: TW-EISAI MEDICAL RESEARCH-EC-2016-018466

PATIENT
  Age: 15 Year
  Sex: Male
  Weight: 27 kg

DRUGS (5)
  1. AMBROXOL [Concomitant]
     Active Substance: AMBROXOL
  2. BETHANECHOL HCL [Concomitant]
  3. VALPROATE SODIUM. [Concomitant]
     Active Substance: VALPROATE SODIUM
  4. FYCOMPA [Suspect]
     Active Substance: PERAMPANEL
     Indication: EPILEPSY
     Route: 048
     Dates: start: 20160518, end: 20161102
  5. CLOBAZAM [Concomitant]
     Active Substance: CLOBAZAM

REACTIONS (8)
  - Pneumonia [Recovered/Resolved]
  - Status epilepticus [Recovered/Resolved]
  - Haematemesis [Recovered/Resolved]
  - Pyrexia [Recovered/Resolved]
  - Gastritis [Recovered/Resolved]
  - Epilepsy [Recovering/Resolving]
  - Haematuria [Recovered/Resolved]
  - Drug ineffective [Not Recovered/Not Resolved]

NARRATIVE: CASE EVENT DATE: 20160708
